FAERS Safety Report 23992461 (Version 2)
Quarter: 2024Q2

REPORT INFORMATION
  Report Type: Spontaneous
  Country: US (occurrence: US)
  Receive Date: 20240620
  Receipt Date: 20240626
  Transmission Date: 20240716
  Serious: No
  Sender: FDA-Public Use
  Company Number: US-OPELLA-2024OHG020972

PATIENT
  Sex: Female

DRUGS (1)
  1. NASACORT ALLERGY 24HR [Suspect]
     Active Substance: TRIAMCINOLONE ACETONIDE
     Indication: Product used for unknown indication
     Dosage: STRENGTH/UNITS: 55 ?G/DOSE
     Route: 065

REACTIONS (4)
  - Vision blurred [Unknown]
  - Pharyngeal disorder [Unknown]
  - Incorrect product administration duration [Unknown]
  - Neoplasm [Unknown]
